FAERS Safety Report 18276448 (Version 1)
Quarter: 2020Q3

REPORT INFORMATION
  Report Type: Spontaneous
  Country: US (occurrence: US)
  Receive Date: 20200917
  Receipt Date: 20200917
  Transmission Date: 20201103
  Serious: No
  Sender: FDA-Public Use
  Company Number: US-AUROBINDO-AUR-APL-2020-015899

PATIENT
  Age: 70 Year
  Sex: Female

DRUGS (3)
  1. CETIRIZINE HYDROCHLORIDE TABLETS USP 10MG [Suspect]
     Active Substance: CETIRIZINE HYDROCHLORIDE
     Indication: RASH PRURITIC
     Dosage: 10 MILLIGRAM, ONCE A DAY
     Route: 048
     Dates: start: 202003
  2. CETIRIZINE HYDROCHLORIDE TABLETS USP 10MG [Suspect]
     Active Substance: CETIRIZINE HYDROCHLORIDE
     Dosage: 1 DOSAGE FORM, ONCE A DAY
     Route: 048
     Dates: start: 20200323
  3. PANTOPRAZOLE [Concomitant]
     Active Substance: PANTOPRAZOLE
     Indication: PRODUCT USED FOR UNKNOWN INDICATION
     Dosage: UNK
     Route: 048

REACTIONS (2)
  - Extra dose administered [Unknown]
  - Accidental exposure to product [Unknown]

NARRATIVE: CASE EVENT DATE: 20200323
